FAERS Safety Report 25132722 (Version 1)
Quarter: 2025Q1

REPORT INFORMATION
  Report Type: Spontaneous
  Country: AU (occurrence: AU)
  Receive Date: 20250328
  Receipt Date: 20250328
  Transmission Date: 20250408
  Serious: Yes (Hospitalization)
  Sender: ORGANON
  Company Number: AU-GENERIC HEALTH PTY. LTD.-2025-00651

PATIENT
  Age: 22 Year
  Sex: Female

DRUGS (2)
  1. SIMVASTATIN [Suspect]
     Active Substance: SIMVASTATIN
     Indication: Type IIa hyperlipidaemia
     Dosage: 40 MILLIGRAM, BID
     Route: 065
  2. PROBUCOL [Suspect]
     Active Substance: PROBUCOL
     Indication: Type IIa hyperlipidaemia
     Dosage: 500 MILLIGRAM, BID

REACTIONS (2)
  - Drug ineffective [Unknown]
  - Drug intolerance [Unknown]
